FAERS Safety Report 10027085 (Version 1)
Quarter: 2014Q1

REPORT INFORMATION
  Report Type: Spontaneous
  Country: US (occurrence: US)
  Receive Date: 20140321
  Receipt Date: 20140321
  Transmission Date: 20141002
  Serious: No
  Sender: FDA-Public Use
  Company Number: US-MYLANLABS-2013S1004722

PATIENT
  Age: 65 Year
  Sex: Female

DRUGS (5)
  1. ESTRADIOL TRANSDERMAL SYSTEM, USP [Suspect]
     Indication: HORMONE REPLACEMENT THERAPY
     Dosage: QW
     Route: 062
     Dates: start: 20130205
  2. AVAPRO [Concomitant]
     Indication: BLOOD PRESSURE INCREASED
     Route: 048
  3. SINGULAR [Concomitant]
     Indication: MULTIPLE ALLERGIES
     Route: 048
  4. NORTRIPTYLINE [Concomitant]
     Indication: MIGRAINE
     Route: 048
  5. SIMBICORT TURBUHALER [Concomitant]
     Indication: ASTHMA
     Route: 055

REACTIONS (1)
  - Application site erythema [Not Recovered/Not Resolved]
